FAERS Safety Report 8204363-0 (Version None)
Quarter: 2012Q1

REPORT INFORMATION
  Report Type: 
  Country: None (occurrence: None)
  Receive Date: 20120313
  Receipt Date: 20120313
  Transmission Date: 20120608
  Serious: Yes (Hospitalization)
  Sender: FDA-Public Use
  Company Number: None

PATIENT
  Age: 73 Year
  Sex: Female
  Weight: 84.7 kg

DRUGS (1)
  1. OMEPRAZOLE [Suspect]
     Dosage: 20.0 MG
     Route: 048

REACTIONS (3)
  - TUBULOINTERSTITIAL NEPHRITIS [None]
  - DIALYSIS [None]
  - RENAL FAILURE ACUTE [None]
